FAERS Safety Report 23241481 (Version 1)
Quarter: 2023Q4

REPORT INFORMATION
  Report Type: Spontaneous
  Country: US (occurrence: US)
  Receive Date: 20231129
  Receipt Date: 20231129
  Transmission Date: 20240110
  Serious: Yes (Hospitalization, Other)
  Sender: FDA-Public Use
  Company Number: US-AMGEN-USASP2023210400

PATIENT
  Age: 41 Year
  Sex: Male

DRUGS (1)
  1. SENSIPAR [Suspect]
     Active Substance: CINACALCET HYDROCHLORIDE
     Indication: Hyperparathyroidism tertiary
     Dosage: 60 MILLIGRAM, BID
     Route: 065

REACTIONS (4)
  - Squamous cell carcinoma [Unknown]
  - Hypercalcaemia [Recovered/Resolved]
  - Anal ulcer haemorrhage [Unknown]
  - Off label use [Unknown]
